FAERS Safety Report 8789596 (Version 1)
Quarter: 2012Q4

REPORT INFORMATION
  Report Type: Spontaneous
  Country: None (occurrence: None)
  Receive Date: 20120905
  Receipt Date: 20120905
  Transmission Date: 20130627
  Serious: Yes (Hospitalization, Other)
  Sender: FDA-Public Use
  Company Number: AUR-APL-2012-03768

PATIENT
  Age: 53 Year
  Sex: Female

DRUGS (4)
  1. LAMOTRIGINE (LAMOTRIGINE) [Suspect]
     Indication: DRUG USE FOR UNKNOWN INDICATION
  2. ACETYLCYSTEINE [Suspect]
     Indication: DRUG USE FOR UNKNOWN INDICATION
  3. AMBROXOL [Suspect]
     Indication: DRUG USE FOR UNKNOWN INDICATION
  4. QUETIAPINE [Suspect]
     Indication: DRUG USE FOR UNKNOWN INDICATION

REACTIONS (1)
  - Stevens-Johnson syndrome [None]
